FAERS Safety Report 14803356 (Version 1)
Quarter: 2018Q2

REPORT INFORMATION
  Report Type: Spontaneous
  Country: FR (occurrence: FR)
  Receive Date: 20180425
  Receipt Date: 20180425
  Transmission Date: 20180711
  Serious: Yes (Other)
  Sender: FDA-Public Use
  Company Number: FR-ORION CORPORATION ORION PHARMA-18_00003454

PATIENT
  Age: 64 Year
  Sex: Female

DRUGS (3)
  1. TRIVASTAL [Suspect]
     Active Substance: PIRIBEDIL
     Dosage: STRENGTH: 50 MG
     Route: 048
     Dates: start: 20060321
  2. STALEVO [Suspect]
     Active Substance: CARBIDOPA\ENTACAPONE\LEVODOPA
     Indication: PARKINSON^S DISEASE
     Dosage: STRENGTH: 75/18.75/200 MG
     Route: 048
     Dates: start: 201409
  3. AZILECT [Suspect]
     Active Substance: RASAGILINE MESYLATE
     Indication: PARKINSON^S DISEASE
     Dosage: STRENGTH: 1 MG
     Route: 048
     Dates: start: 20101209

REACTIONS (3)
  - Oedema peripheral [Not Recovered/Not Resolved]
  - Joint swelling [Not Recovered/Not Resolved]
  - Arthralgia [Not Recovered/Not Resolved]

NARRATIVE: CASE EVENT DATE: 2017
